FAERS Safety Report 9454770 (Version 1)
Quarter: 2013Q3

REPORT INFORMATION
  Report Type: Spontaneous
  Country: US (occurrence: US)
  Receive Date: 20130812
  Receipt Date: 20130812
  Transmission Date: 20140515
  Serious: No
  Sender: FDA-Public Use
  Company Number: US-009507513-1308USA003669

PATIENT
  Sex: Male

DRUGS (4)
  1. IVEMEND [Suspect]
     Indication: HEAD AND NECK CANCER
     Dosage: UNK
     Route: 042
     Dates: start: 20130806
  2. CISPLATIN [Concomitant]
  3. ALOXI [Concomitant]
  4. BENADRYL [Suspect]

REACTIONS (3)
  - Pruritus [Recovered/Resolved]
  - Urticaria [Recovered/Resolved]
  - Off label use [Unknown]
